FAERS Safety Report 5512821-2 (Version None)
Quarter: 2007Q4

REPORT INFORMATION
  Report Type: 
  Country: None (occurrence: None)
  Receive Date: 20071108
  Receipt Date: 20071025
  Transmission Date: 20080405
  Serious: Yes (Disabling)
  Sender: FDA-Public Use
  Company Number: GB-1164180

PATIENT
  Age: 33 Year
  Sex: Female

DRUGS (1)
  1. CHLORAMPHENICOL [Suspect]
     Indication: INFECTION PROPHYLAXIS
     Dosage: TID TO THE EYE AND SUTURED INCISION OPHTHALMIC
     Route: 047

REACTIONS (13)
  - ACHROMOTRICHIA ACQUIRED [None]
  - ANTERIOR CHAMBER CELL [None]
  - CONJUNCTIVITIS ALLERGIC [None]
  - CORNEAL DEPOSITS [None]
  - ERYTHEMA OF EYELID [None]
  - EYE IRRITATION [None]
  - EYELID OEDEMA [None]
  - INTRAOCULAR PRESSURE INCREASED [None]
  - LACRIMATION INCREASED [None]
  - SKIN HYPOPIGMENTATION [None]
  - UVEITIS [None]
  - VISUAL ACUITY REDUCED [None]
  - VITILIGO [None]
